FAERS Safety Report 15600842 (Version 4)
Quarter: 2019Q1

REPORT INFORMATION
  Report Type: Report from Study
  Country: CN (occurrence: CN)
  Receive Date: 20181109
  Receipt Date: 20190329
  Transmission Date: 20190417
  Serious: Yes (Hospitalization)
  Sender: FDA-Public Use
  Company Number: CN-ROCHE-2210832

PATIENT
  Age: 70 Year
  Sex: Male
  Weight: 79.5 kg

DRUGS (29)
  1. PANTOPRAZOLE SODIUM. [Concomitant]
     Active Substance: PANTOPRAZOLE SODIUM
     Route: 065
     Dates: start: 20181018, end: 20181018
  2. PANTOPRAZOLE SODIUM. [Concomitant]
     Active Substance: PANTOPRAZOLE SODIUM
     Route: 065
     Dates: start: 20181020, end: 20181025
  3. FORLAX [Concomitant]
     Active Substance: POLYETHYLENE GLYCOL 4000
     Indication: CONSTIPATION
     Route: 065
     Dates: start: 20181001, end: 20181005
  4. SPIRONOLACTONE. [Concomitant]
     Active Substance: SPIRONOLACTONE
     Route: 065
     Dates: start: 20181017, end: 20181019
  5. METOPROLOL. [Concomitant]
     Active Substance: METOPROLOL
     Indication: HYPERTENSION
     Route: 065
     Dates: start: 20181002
  6. AMOXICILLIN. [Concomitant]
     Active Substance: AMOXICILLIN
     Indication: MOUTH ULCERATION
     Route: 065
     Dates: end: 2018
  7. AZITHROMYCIN ANHYDROUS. [Concomitant]
     Active Substance: AZITHROMYCIN ANHYDROUS
     Indication: MOUTH ULCERATION
     Route: 065
     Dates: end: 2018
  8. PALONOSETRON HYDROCHLORIDE. [Concomitant]
     Active Substance: PALONOSETRON HYDROCHLORIDE
     Indication: VOMITING
     Route: 065
     Dates: start: 20181018, end: 20181018
  9. ONDANSETRON HYDROCHLORIDE. [Concomitant]
     Active Substance: ONDANSETRON HYDROCHLORIDE
     Route: 065
     Dates: start: 20181020, end: 20181025
  10. ETORICOXIB. [Concomitant]
     Active Substance: ETORICOXIB
     Indication: PAIN
     Route: 065
     Dates: start: 20180726
  11. BERBERINE [Concomitant]
     Active Substance: BERBERINE
     Indication: DIARRHOEA
     Route: 065
     Dates: end: 2018
  12. CISPLATIN. [Suspect]
     Active Substance: CISPLATIN
     Indication: NON-SMALL CELL LUNG CANCER STAGE IV
     Dosage: 18/OCT/2018, MOST RECENT DOSE OF CISPLATIN PRIOR TO SAE ONSET 100 MG
     Route: 042
     Dates: start: 20180705
  13. TELMISARTAN. [Concomitant]
     Active Substance: TELMISARTAN
     Indication: HYPERTENSION
  14. FUROSEMIDE. [Concomitant]
     Active Substance: FUROSEMIDE
     Route: 065
     Dates: start: 20181017, end: 20181019
  15. APREPITANT. [Concomitant]
     Active Substance: APREPITANT
     Indication: VOMITING
     Route: 065
     Dates: start: 20181018, end: 20181020
  16. PEMETREXED. [Suspect]
     Active Substance: PEMETREXED
     Indication: NON-SMALL CELL LUNG CANCER STAGE IV
     Dosage: 18/OCT/2018, MOST RECENT DOSE OF PEMETREXED PRIOR TO SAE ONSET 740 MG
     Route: 042
     Dates: start: 20180705
  17. VITAMIN C [Concomitant]
     Active Substance: ASCORBIC ACID
     Indication: MOUTH ULCERATION
     Route: 065
     Dates: end: 2018
  18. ATEZOLIZUMAB. [Suspect]
     Active Substance: ATEZOLIZUMAB
     Indication: NON-SMALL CELL LUNG CANCER STAGE IV
     Dosage: 18/OCT/2018, MOST RECENT DOSE OF ATEZOLIZUMAB TO SAE ONSET
     Route: 042
     Dates: start: 20180705
  19. LEVOFLOXACIN. [Concomitant]
     Active Substance: LEVOFLOXACIN
     Indication: MOUTH ULCERATION
     Route: 065
     Dates: end: 2018
  20. NORFLOXACIN [Concomitant]
     Active Substance: NORFLOXACIN
     Indication: DIARRHOEA
     Route: 065
     Dates: end: 2018
  21. METOPROLOL TARTRATE. [Concomitant]
     Active Substance: METOPROLOL TARTRATE
     Indication: NAUSEA
     Route: 065
     Dates: start: 20181001, end: 20181007
  22. METOPROLOL TARTRATE. [Concomitant]
     Active Substance: METOPROLOL TARTRATE
     Route: 065
     Dates: start: 20181102
  23. AMIFOSTINE. [Concomitant]
     Active Substance: AMIFOSTINE
     Route: 065
     Dates: start: 20181018, end: 20181018
  24. MONTMORILLONITE [Concomitant]
     Active Substance: MONTMORILLONITE
     Indication: DIARRHOEA
     Route: 065
     Dates: end: 2018
  25. PANTOPRAZOLE SODIUM. [Concomitant]
     Active Substance: PANTOPRAZOLE SODIUM
     Route: 065
     Dates: start: 20180927, end: 20181002
  26. METOPROLOL TARTRATE. [Concomitant]
     Active Substance: METOPROLOL TARTRATE
     Indication: VOMITING
     Route: 065
     Dates: start: 20181020, end: 20181025
  27. VITAMIN B2 [Concomitant]
     Active Substance: RIBOFLAVIN
     Indication: MOUTH ULCERATION
     Route: 065
     Dates: end: 2018
  28. GLUTATHIONE REDUCED [Concomitant]
     Route: 065
     Dates: start: 20181018, end: 20181018
  29. ONDANSETRON HYDROCHLORIDE. [Concomitant]
     Active Substance: ONDANSETRON HYDROCHLORIDE
     Indication: NAUSEA
     Route: 065
     Dates: start: 20181001, end: 20181007

REACTIONS (1)
  - Platelet count decreased [Recovered/Resolved]

NARRATIVE: CASE EVENT DATE: 20181101
